FAERS Safety Report 24768046 (Version 1)
Quarter: 2024Q4

REPORT INFORMATION
  Report Type: Report from Study
  Country: US (occurrence: US)
  Receive Date: 20241223
  Receipt Date: 20241223
  Transmission Date: 20250115
  Serious: No
  Sender: ASTELLAS
  Company Number: US-ASTELLAS-2024-AER-017808

PATIENT
  Sex: Female

DRUGS (3)
  1. FEZOLINETANT [Suspect]
     Active Substance: FEZOLINETANT
     Indication: Hot flush
     Route: 048
  2. FEZOLINETANT [Suspect]
     Active Substance: FEZOLINETANT
     Indication: Hyperhidrosis
     Route: 048
     Dates: start: 202402, end: 202402
  3. LETROZOLE [Concomitant]
     Active Substance: LETROZOLE
     Indication: Prophylaxis
     Route: 065

REACTIONS (3)
  - Skin burning sensation [Recovered/Resolved]
  - Oral discomfort [Recovered/Resolved]
  - Off label use [Unknown]
